FAERS Safety Report 9262612 (Version 1)
Quarter: 2013Q2

REPORT INFORMATION
  Report Type: Spontaneous
  Country: US (occurrence: US)
  Receive Date: 20130430
  Receipt Date: 20130430
  Transmission Date: 20140414
  Serious: Yes (Other)
  Sender: FDA-Public Use
  Company Number: US-ELI_LILLY_AND_COMPANY-US201303007990

PATIENT
  Sex: Male
  Weight: 117.91 kg

DRUGS (3)
  1. SYMBYAX [Suspect]
     Indication: BIPOLAR DISORDER
     Dosage: 12/25 DF, UNKNOWN
     Route: 048
     Dates: start: 20080609, end: 201007
  2. SYMBYAX [Suspect]
     Dosage: UNK, QD
     Dates: start: 20111010
  3. SYMBYAX [Suspect]
     Dosage: 6/25 DF, UNKNOWN
     Dates: start: 20130320

REACTIONS (6)
  - Blood calcium increased [Unknown]
  - Diabetes mellitus [Unknown]
  - Weight increased [Unknown]
  - Blood triglycerides increased [Unknown]
  - Blood cholesterol increased [Unknown]
  - Appetite disorder [Unknown]
